FAERS Safety Report 6358709-9 (Version None)
Quarter: 2009Q3

REPORT INFORMATION
  Report Type: 
  Country: None (occurrence: None)
  Receive Date: 20090916
  Receipt Date: 20090630
  Transmission Date: 20100115
  Serious: No
  Sender: FDA-Public Use
  Company Number: US-ABBOTT-09P-163-0582854-00

PATIENT
  Sex: Male
  Weight: 80.358 kg

DRUGS (5)
  1. TRILIPIX [Suspect]
     Indication: BLOOD TRIGLYCERIDES INCREASED
     Dates: start: 20090601, end: 20090613
  2. TRILIPIX [Suspect]
     Indication: LIPIDS INCREASED
     Dates: start: 20090620, end: 20090624
  3. TRILIPIX [Suspect]
     Dates: start: 20090627, end: 20090627
  4. LIPITOR [Concomitant]
     Indication: DRUG USE FOR UNKNOWN INDICATION
  5. ZETIA [Concomitant]
     Indication: DRUG USE FOR UNKNOWN INDICATION

REACTIONS (3)
  - DIARRHOEA [None]
  - DRUG INTOLERANCE [None]
  - MUSCLE SPASMS [None]
